FAERS Safety Report 8607052-3 (Version None)
Quarter: 2012Q3

REPORT INFORMATION
  Report Type: 
  Country: None (occurrence: None)
  Receive Date: 20120821
  Receipt Date: 20120810
  Transmission Date: 20120928
  Serious: Yes (Hospitalization)
  Sender: FDA-Public Use
  Company Number: BR-AMGEN-BRASP2012044641

PATIENT
  Age: 47 Year
  Sex: Female
  Weight: 36.5 kg

DRUGS (10)
  1. RISPERIDONE [Concomitant]
     Dosage: UNK
  2. CLONAZEPAM [Concomitant]
     Dosage: UNK UNK, UNK
  3. RISPERIDONE [Concomitant]
     Dosage: UNK UNK, UNK
  4. CLONAZEPAM [Concomitant]
     Dosage: UNK
  5. CORTICOSTEROIDS [Concomitant]
     Dosage: UNK
  6. CLOMETACIN [Concomitant]
     Dosage: UNK
  7. METHOTREXATE [Concomitant]
     Dosage: UNK UNK, UNK
  8. METHOTREXATE [Concomitant]
     Dosage: UNK
  9. ACTEMRA [Suspect]
     Dosage: UNK
  10. ENBREL [Suspect]
     Indication: RHEUMATOID ARTHRITIS
     Dosage: 50 MG, ONCE WEEKLY
     Route: 058
     Dates: start: 20071201, end: 20110801

REACTIONS (4)
  - NERVOUS SYSTEM DISORDER [None]
  - PSYCHOTIC DISORDER [None]
  - DRUG INEFFECTIVE [None]
  - WEIGHT DECREASED [None]
